FAERS Safety Report 15866958 (Version 1)
Quarter: 2019Q1

REPORT INFORMATION
  Report Type: Spontaneous
  Country: CZ (occurrence: CZ)
  Receive Date: 20190125
  Receipt Date: 20190125
  Transmission Date: 20190417
  Serious: Yes (Other)
  Sender: FDA-Public Use
  Company Number: CZ-ACCORD-103379

PATIENT
  Age: 62 Year
  Sex: Female

DRUGS (3)
  1. CARBOPLATIN. [Suspect]
     Active Substance: CARBOPLATIN
     Indication: LUNG ADENOCARCINOMA
     Dosage: DAY 1
     Route: 065
  2. VINORELBINE [Suspect]
     Active Substance: VINORELBINE\VINORELBINE TARTRATE
     Indication: LUNG ADENOCARCINOMA
     Dosage: DAY 1 AND 8
     Route: 048
  3. AVASTIN [Suspect]
     Active Substance: BEVACIZUMAB
     Indication: LUNG ADENOCARCINOMA
     Dosage: DAY 1,FROM JAN-2016 MAINTENANCE TREATMENT 7,5MG/KG
     Route: 065

REACTIONS (3)
  - Chronic obstructive pulmonary disease [Unknown]
  - Atrial fibrillation [Recovered/Resolved]
  - Arrhythmia [Recovered/Resolved]

NARRATIVE: CASE EVENT DATE: 201610
